FAERS Safety Report 16547403 (Version 4)
Quarter: 2021Q3

REPORT INFORMATION
  Report Type: Spontaneous
  Country: US (occurrence: US)
  Receive Date: 20190709
  Receipt Date: 20210709
  Transmission Date: 20211014
  Serious: No
  Sender: FDA-Public Use
  Company Number: US-ASTELLAS-2019US023907

PATIENT
  Age: 85 Year
  Sex: Female

DRUGS (2)
  1. MYRBETRIQ [Suspect]
     Active Substance: MIRABEGRON
     Indication: PRODUCT USED FOR UNKNOWN INDICATION
     Dosage: 50 MG TABLETS IN HALF AND TOOK A HALF OF A TABLET ONCE
     Route: 065
  2. MYRBETRIQ [Suspect]
     Active Substance: MIRABEGRON
     Indication: PRODUCT USED FOR UNKNOWN INDICATION
     Route: 065
     Dates: start: 2019

REACTIONS (10)
  - Vector-borne transmission of infection [Recovered/Resolved]
  - Product dispensing error [Unknown]
  - Wrong technique in product usage process [Unknown]
  - Uterine pain [Unknown]
  - Incorrect product dosage form administered [Unknown]
  - Therapeutic product effect incomplete [Unknown]
  - Bladder pain [Unknown]
  - Burning sensation [Unknown]
  - Pruritus [Unknown]
  - Pollakiuria [Unknown]
